FAERS Safety Report 9196933 (Version 2)
Quarter: 2013Q3

REPORT INFORMATION
  Report Type: Spontaneous
  Country: US (occurrence: US)
  Receive Date: 20130328
  Receipt Date: 20130710
  Transmission Date: 20140515
  Serious: Yes (Other)
  Sender: FDA-Public Use
  Company Number: US-ROCHE-1199666

PATIENT
  Age: 72 Year
  Sex: Male

DRUGS (1)
  1. LUCENTIS [Suspect]
     Indication: DIABETIC RETINAL OEDEMA
     Route: 050

REACTIONS (4)
  - Eye inflammation [Recovered/Resolved]
  - Corneal oedema [Recovered/Resolved]
  - Inflammation [Unknown]
  - Visual acuity reduced [Unknown]
